FAERS Safety Report 7403633-3 (Version None)
Quarter: 2011Q2

REPORT INFORMATION
  Report Type: 
  Country: None (occurrence: None)
  Receive Date: 20110408
  Receipt Date: 20110328
  Transmission Date: 20111010
  Serious: Yes (Hospitalization)
  Sender: FDA-Public Use
  Company Number: PHHY2011US05763

PATIENT
  Sex: Male
  Weight: 77.09 kg

DRUGS (2)
  1. FINASTERIDE [Concomitant]
     Dosage: 5 MG, UNK
  2. EXJADE [Suspect]
     Indication: MYELODYSPLASTIC SYNDROME
     Dosage: 1625 MG, QD
     Route: 048

REACTIONS (1)
  - INFECTION [None]
